FAERS Safety Report 8338704 (Version 4)
Quarter: 2013Q1

REPORT INFORMATION
  Report Type: Spontaneous
  Country: DK (occurrence: DK)
  Receive Date: 20120117
  Receipt Date: 20130205
  Transmission Date: 20140127
  Serious: Yes (Hospitalization, Other)
  Sender: FDA-Public Use
  Company Number: DK-PFIZER INC-2012010125

PATIENT
  Age: 65 Year
  Sex: Female

DRUGS (1)
  1. CHAMPIX [Suspect]
     Indication: SMOKING CESSATION THERAPY
     Dosage: UNK
     Dates: start: 20100824

REACTIONS (9)
  - Loss of consciousness [Recovered/Resolved]
  - Fall [Unknown]
  - Convulsion [Unknown]
  - Amnesia [Unknown]
  - Cerebral microangiopathy [Unknown]
  - Nervous system disorder [Unknown]
  - Urinary incontinence [Unknown]
  - Foaming at mouth [Unknown]
  - Muscle spasms [Unknown]
